FAERS Safety Report 17809187 (Version 1)
Quarter: 2020Q2

REPORT INFORMATION
  Report Type: Spontaneous
  Country: GR (occurrence: GR)
  Receive Date: 20200520
  Receipt Date: 20200520
  Transmission Date: 20200714
  Serious: Yes (Death, Hospitalization, Other)
  Sender: FDA-Public Use
  Company Number: GR-SAKK-2018SA329308AA

PATIENT
  Age: 70 Year
  Sex: Male

DRUGS (1)
  1. DOCETAXEL. [Suspect]
     Active Substance: DOCETAXEL

REACTIONS (3)
  - Pyrexia [Unknown]
  - Abdominal infection [Fatal]
  - Lower respiratory tract infection [Fatal]
